FAERS Safety Report 8370250-0 (Version None)
Quarter: 2012Q2

REPORT INFORMATION
  Report Type: 
  Country: None (occurrence: None)
  Receive Date: 20120518
  Receipt Date: 20120423
  Transmission Date: 20120825
  Serious: Yes (Other)
  Sender: FDA-Public Use
  Company Number: JP-PFIZER INC-2012119136

PATIENT
  Age: 68 Year
  Sex: Male

DRUGS (8)
  1. NORVASC [Concomitant]
     Dosage: UNK
     Route: 048
  2. BISOPROLOL FUMARATE [Concomitant]
     Dosage: UNK
     Route: 048
  3. ASPIRIN [Concomitant]
     Dosage: UNK
     Route: 048
  4. VESICARE [Concomitant]
     Dosage: 5 MG, UNK
     Route: 048
  5. PLAVIX [Concomitant]
     Dosage: UNK
     Route: 048
  6. TAMSULOSIN [Concomitant]
     Dosage: UNK
     Route: 048
  7. LIPITOR [Suspect]
     Dosage: 10 MG, 3X/DAY
     Route: 048
  8. LOSARTAN POTASSIUM AND HYDROCHLOROTHIAZIDE [Concomitant]
     Dosage: UNK
     Route: 048

REACTIONS (1)
  - AMNESIA [None]
